FAERS Safety Report 8711117 (Version 3)
Quarter: 2013Q4

REPORT INFORMATION
  Report Type: Spontaneous
  Country: JP (occurrence: None)
  Receive Date: 20120723
  Receipt Date: 20131224
  Transmission Date: 20140711
  Serious: Yes (Other)
  Sender: FDA-Public Use
  Company Number: EUS-2012-00479

PATIENT
  Age: 15 Year
  Sex: Female
  Weight: 45 kg

DRUGS (4)
  1. ASPARAGINASE [Suspect]
     Indication: ACUTE LYMPHOCYTIC LEUKAEMIA
     Dosage: TOTAL ADMINISTERED
  2. METHOTREXATE (METHOTREXATE) (METHOTREXATE) [Concomitant]
  3. VINCRISTINE SULFATE [Concomitant]
  4. DEXAMETHASONE [Concomitant]

REACTIONS (8)
  - Hyperlipidaemia [None]
  - Acute lymphocytic leukaemia recurrent [None]
  - Type V hyperlipidaemia [None]
  - Prothrombin time prolonged [None]
  - Activated partial thromboplastin time prolonged [None]
  - Pseudohyponatraemia [None]
  - Blood chloride decreased [None]
  - Blood glucose decreased [None]
